FAERS Safety Report 4983088-9 (Version None)
Quarter: 2006Q2

REPORT INFORMATION
  Report Type: 
  Country: None (occurrence: None)
  Receive Date: 20060419
  Receipt Date: 20060410
  Transmission Date: 20061013
  Serious: Yes (Hospitalization, Disabling)
  Sender: FDA-Public Use
  Company Number: 200611303GDS

PATIENT
  Age: 76 Year
  Sex: Male
  Weight: 63 kg

DRUGS (4)
  1. ASPIRIN [Suspect]
     Dosage: 100 MG, TOTAL DAILY,  ORAL
     Route: 048
     Dates: end: 20060316
  2. GLYCERYL TRINITRATE [Concomitant]
  3. EZETROL [Concomitant]
  4. SELIPRAN [Concomitant]

REACTIONS (4)
  - BLOOD PRESSURE INCREASED [None]
  - CEREBRAL HAEMORRHAGE [None]
  - EPISTAXIS [None]
  - ISCHAEMIC STROKE [None]
